FAERS Safety Report 21053616 (Version 3)
Quarter: 2023Q2

REPORT INFORMATION
  Report Type: Spontaneous
  Country: US (occurrence: US)
  Receive Date: 20220707
  Receipt Date: 20230602
  Transmission Date: 20230722
  Serious: Yes (Other)
  Sender: FDA-Public Use
  Company Number: US-BRISTOL-MYERS SQUIBB COMPANY-2022-066584

PATIENT
  Age: 75 Year
  Sex: Female

DRUGS (2)
  1. ORENCIA [Suspect]
     Active Substance: ABATACEPT
     Indication: Product used for unknown indication
     Route: 058
  2. ORENCIA [Suspect]
     Active Substance: ABATACEPT
     Dosage: MISSED DOSE FOR 2 WEEKS AND CONTINUED WITH HER NORMAL DOSE
     Route: 058

REACTIONS (3)
  - Fall [Unknown]
  - Lower limb fracture [Unknown]
  - Infection [Unknown]

NARRATIVE: CASE EVENT DATE: 20220628
